FAERS Safety Report 18951016 (Version 1)
Quarter: 2021Q1

REPORT INFORMATION
  Report Type: Spontaneous
  Country: US (occurrence: US)
  Receive Date: 20210228
  Receipt Date: 20210228
  Transmission Date: 20210420
  Serious: No
  Sender: FDA-Public Use
  Company Number: US-ROCHE-2702610

PATIENT

DRUGS (1)
  1. XOLAIR [Suspect]
     Active Substance: OMALIZUMAB
     Indication: PRODUCT USED FOR UNKNOWN INDICATION
     Route: 065

REACTIONS (8)
  - Arthralgia [Unknown]
  - Dizziness [Unknown]
  - Myalgia [Unknown]
  - Headache [Unknown]
  - Serum sickness [Unknown]
  - Feeling of body temperature change [Unknown]
  - Insomnia [Unknown]
  - Dyspnoea [Unknown]
